FAERS Safety Report 13746197 (Version 1)
Quarter: 2017Q3

REPORT INFORMATION
  Report Type: Spontaneous
  Country: US (occurrence: US)
  Receive Date: 20170712
  Receipt Date: 20170712
  Transmission Date: 20171127
  Serious: No
  Sender: FDA-Public Use
  Company Number: US-IPSEN BIOPHARMACEUTICALS, INC.-2013-4761

PATIENT
  Sex: Male

DRUGS (1)
  1. LANREOTIDE ACETATE NOS [Suspect]
     Active Substance: LANREOTIDE ACETATE
     Indication: ACROMEGALY
     Dosage: NOT REPORTED
     Route: 058

REACTIONS (2)
  - Drug administration error [Unknown]
  - Product physical consistency issue [Unknown]
